FAERS Safety Report 12383632 (Version 2)
Quarter: 2016Q2

REPORT INFORMATION
  Report Type: Spontaneous
  Country: IT (occurrence: IT)
  Receive Date: 20160519
  Receipt Date: 20160614
  Transmission Date: 20160815
  Serious: Yes (Other)
  Sender: FDA-Public Use
  Company Number: IT-ROCHE-1759517

PATIENT
  Age: 63 Year
  Sex: Female

DRUGS (1)
  1. BONVIVA [Suspect]
     Active Substance: IBANDRONATE SODIUM
     Indication: OSTEOPOROSIS POSTMENOPAUSAL
     Dosage: 150 MG 1 BLISTER PACK (PVC/PVDC) 1 TABLET.
     Route: 048

REACTIONS (3)
  - Pathological fracture [Unknown]
  - Off label use [Unknown]
  - Anuria [Unknown]

NARRATIVE: CASE EVENT DATE: 201603
